FAERS Safety Report 8988419 (Version 1)
Quarter: 2012Q4

REPORT INFORMATION
  Report Type: Spontaneous
  Country: US (occurrence: None)
  Receive Date: 20121221
  Receipt Date: 20121221
  Transmission Date: 20130627
  Serious: Yes (Hospitalization)
  Sender: FDA-Public Use
  Company Number: None

PATIENT
  Age: 42 Year
  Sex: Male
  Weight: 74 kg

DRUGS (2)
  1. CLINDAMYCIN [Suspect]
     Indication: CELLULITIS
     Route: 048
     Dates: start: 20121209, end: 20121211
  2. INDOMETHACIN [Suspect]
     Indication: PAIN
     Route: 048
     Dates: start: 20121209, end: 20121211

REACTIONS (6)
  - Anaphylactic reaction [None]
  - Treatment noncompliance [None]
  - Urticaria [None]
  - Pruritus [None]
  - Cough [None]
  - Chest discomfort [None]
